FAERS Safety Report 24669849 (Version 1)
Quarter: 2024Q4

REPORT INFORMATION
  Report Type: Spontaneous
  Country: CN (occurrence: CN)
  Receive Date: 20241127
  Receipt Date: 20241127
  Transmission Date: 20250115
  Serious: Yes (Other)
  Sender: PFIZER
  Company Number: CN-PFIZER INC-PV202400152054

PATIENT
  Age: 52 Year
  Sex: Male
  Weight: 60.4 kg

DRUGS (4)
  1. SUTENT [Suspect]
     Active Substance: SUNITINIB MALATE
     Indication: Renal cancer
     Dosage: 50 MG, 1X/DAY
     Route: 048
     Dates: start: 20241030, end: 20241115
  2. TORIPALIMAB [Suspect]
     Active Substance: TORIPALIMAB
     Indication: Renal cancer
     Dosage: 240 MG + 0.9% SODIUM CHLORIDE INJECTION 100ML, 1X/DAY
     Route: 041
     Dates: start: 20241030, end: 20241030
  3. TORIPALIMAB [Suspect]
     Active Substance: TORIPALIMAB
     Indication: Immunomodulatory therapy
  4. SODIUM CHLORIDE [Concomitant]
     Active Substance: SODIUM CHLORIDE
     Indication: Vehicle solution use
     Dosage: 100 ML, 1X/DAY (WITH TORIPALIMAB)
     Route: 041
     Dates: start: 20241030, end: 20241030

REACTIONS (3)
  - Myelosuppression [Recovering/Resolving]
  - Myocarditis [Recovering/Resolving]
  - Neoplasm progression [Unknown]

NARRATIVE: CASE EVENT DATE: 20240101
